FAERS Safety Report 6576974-X (Version None)
Quarter: 2010Q1

REPORT INFORMATION
  Report Type: 
  Country: None (occurrence: None)
  Receive Date: 20100210
  Receipt Date: 20100201
  Transmission Date: 20100710
  Serious: Yes (Other)
  Sender: FDA-Public Use
  Company Number: US-PFIZER INC-2010016311

PATIENT
  Sex: Female
  Weight: 80 kg

DRUGS (6)
  1. GEODON [Suspect]
     Indication: BIPOLAR I DISORDER
     Dosage: FREQUENCY: 2X/DAY,
     Route: 048
  2. ETHINYL ESTRADIOL W/NORGESTREL [Concomitant]
     Indication: CONTRACEPTION
     Dosage: UNK
  3. PROZAC [Concomitant]
     Indication: DEPRESSION
     Dosage: 30 MG, 1X/DAY
     Route: 048
  4. METOPROLOL TARTRATE [Concomitant]
     Indication: HYPERTENSION
     Dosage: 50 MG, 1X/DAY
  5. CRESTOR [Concomitant]
     Indication: HYPERLIPIDAEMIA
     Dosage: 40 MG, 1X/DAY
     Route: 048
  6. KLONOPIN [Concomitant]
     Indication: ANXIETY
     Dosage: FREQUENCY: 3-4X/DAY,
     Route: 048

REACTIONS (1)
  - THROMBOCYTOPENIC PURPURA [None]
